FAERS Safety Report 5245158-X (Version None)
Quarter: 2007Q1

REPORT INFORMATION
  Report Type: 
  Country: None (occurrence: None)
  Receive Date: 20070223
  Receipt Date: 20070213
  Transmission Date: 20070707
  Serious: Yes (Other)
  Sender: FDA-Public Use
  Company Number: PHFR2006GB03222

PATIENT
  Age: 8 Year
  Sex: Male

DRUGS (5)
  1. LIORESAL [Suspect]
     Indication: CEREBRAL PALSY
     Dosage: UNK, UNK
     Route: 048
  2. OMEPRAZOLE [Concomitant]
     Route: 048
  3. DOMPERIDONE [Concomitant]
     Route: 048
  4. PHENYTOIN [Concomitant]
     Route: 048
  5. PHENOBARBITONE [Concomitant]
     Route: 048

REACTIONS (2)
  - FOREIGN BODY ASPIRATION [None]
  - RESPIRATION ABNORMAL [None]
